FAERS Safety Report 14394631 (Version 1)
Quarter: 2018Q1

REPORT INFORMATION
  Report Type: Report from Study
  Country: US (occurrence: US)
  Receive Date: 20180116
  Receipt Date: 20180116
  Transmission Date: 20180509
  Serious: Yes (Death, Other)
  Sender: FDA-Public Use
  Company Number: US-PFIZER INC-2018011347

PATIENT
  Age: 64 Year
  Sex: Female
  Weight: 39 kg

DRUGS (1)
  1. THEOPHYLLINE [Suspect]
     Active Substance: THEOPHYLLINE ANHYDROUS
     Dosage: 31 MG/KG, DAILY
     Route: 042

REACTIONS (2)
  - Toxicity to various agents [Fatal]
  - Generalised tonic-clonic seizure [Fatal]
